FAERS Safety Report 5268578-6 (Version None)
Quarter: 2007Q1

REPORT INFORMATION
  Report Type: 
  Country: None (occurrence: None)
  Receive Date: 20070319
  Receipt Date: 20070315
  Transmission Date: 20070707
  Serious: Yes (Hospitalization)
  Sender: FDA-Public Use
  Company Number: US-BRISTOL-MYERS SQUIBB COMPANY-13716170

PATIENT
  Age: 70 Year
  Sex: Female
  Weight: 72 kg

DRUGS (21)
  1. PACLITAXEL [Suspect]
     Indication: NON-SMALL CELL LUNG CANCER
     Route: 042
     Dates: start: 20070105, end: 20070105
  2. CARBOPLATIN [Suspect]
     Indication: NON-SMALL CELL LUNG CANCER
     Route: 042
     Dates: start: 20070105, end: 20070105
  3. DIGOXIN [Concomitant]
     Route: 048
     Dates: start: 20040402
  4. COREG [Concomitant]
     Route: 048
     Dates: start: 20040428
  5. TEMAZEPAM [Concomitant]
     Route: 048
     Dates: start: 20050831
  6. SPIRONOLACTONE [Concomitant]
     Route: 048
     Dates: start: 20050307
  7. RANITIDINE [Concomitant]
     Route: 048
     Dates: start: 20050125
  8. LEVOTHYROXINE SODIUM [Concomitant]
     Route: 048
     Dates: start: 20051209
  9. PENTOXIFYLLINE [Concomitant]
     Route: 048
     Dates: start: 20041220
  10. POTASSIUM CHLORIDE [Concomitant]
     Route: 048
     Dates: start: 20040810
  11. LISINOPRIL [Concomitant]
     Route: 048
     Dates: start: 20040402
  12. CYANOCOBALAMIN [Concomitant]
     Route: 058
     Dates: start: 20050912
  13. COENZYME Q10 [Concomitant]
     Route: 048
     Dates: start: 20050803
  14. ACETYLSALICYLIC ACID SRT [Concomitant]
     Route: 048
     Dates: start: 20040401
  15. PAROXETINE HCL [Concomitant]
     Route: 048
     Dates: start: 20050831
  16. ZOFRAN [Concomitant]
     Route: 048
     Dates: start: 20070105
  17. DECADRON [Concomitant]
     Route: 048
     Dates: start: 20070105
  18. COMPAZINE [Concomitant]
     Route: 048
     Dates: start: 20070105
  19. XANAX [Concomitant]
     Route: 048
     Dates: start: 20070116
  20. HYDROCODONE [Concomitant]
     Dates: start: 20070109
  21. METHADONE HCL [Concomitant]
     Dates: start: 20070116

REACTIONS (5)
  - ANOREXIA [None]
  - CONFUSIONAL STATE [None]
  - CONSTIPATION [None]
  - DEHYDRATION [None]
  - FATIGUE [None]
